FAERS Safety Report 5190535-9 (Version None)
Quarter: 2006Q4

REPORT INFORMATION
  Report Type: 
  Country: None (occurrence: None)
  Receive Date: 20061222
  Receipt Date: 20060509
  Transmission Date: 20070319
  Serious: Yes (Death)
  Sender: FDA-Public Use
  Company Number: US-ELI_LILLY_AND_COMPANY-US200609001602

PATIENT
  Age: 35 Year
  Sex: Female
  Weight: 83.446 kg

DRUGS (3)
  1. QUETIAPINE FUMARATE [Concomitant]
     Dates: start: 20030101, end: 20060101
  2. FLUOXETINE                              /N/A/ [Concomitant]
     Dates: start: 20010101, end: 20060101
  3. ZYPREXA [Suspect]
     Dosage: UNK, UNK
     Route: 065
     Dates: start: 20010101, end: 20060101

REACTIONS (2)
  - DEATH [None]
  - DIABETES MELLITUS [None]
